FAERS Safety Report 9222592 (Version 1)
Quarter: 2013Q1

REPORT INFORMATION
  Report Type: Spontaneous
  Country: US (occurrence: None)
  Receive Date: 20120914
  Receipt Date: 20120914
  Transmission Date: 20140127
  Serious: Yes (Other)
  Sender: FDA-Public Use
  Company Number: JPI-P-012829

PATIENT
  Age: 52 Year
  Sex: Female
  Weight: 65.77 kg

DRUGS (6)
  1. XYREM (500 MILLIGRAM/MILLILITERS, SOLUTION)(SODIUM OXYBATE) [Suspect]
     Indication: NARCOLEPSY
     Dosage: 2.25 GM, 2 IN 1 D)
     Route: 048
     Dates: start: 20100930
  2. UNSPECIFIED ACID REFLUX MEDICATION [Concomitant]
  3. POTASSIUM [Concomitant]
  4. UNSPECIFIED ARTHRITIS [Concomitant]
  5. UNSPECIFIED CHOLESTEROL MEDICDATION [Concomitant]
  6. CLARITHROMYCIN [Concomitant]

REACTIONS (10)
  - Weight decreased [None]
  - Abnormal sensation in eye [None]
  - Eye infection [None]
  - Lacrimation increased [None]
  - Cataract [None]
  - Condition aggravated [None]
  - Hordeolum [None]
  - Tooth disorder [None]
  - Back pain [None]
  - Sinusitis [None]
